FAERS Safety Report 10026718 (Version 1)
Quarter: 2014Q1

REPORT INFORMATION
  Report Type: Spontaneous
  Country: AU (occurrence: AU)
  Receive Date: 20140321
  Receipt Date: 20140321
  Transmission Date: 20141002
  Serious: Yes (Hospitalization)
  Sender: FDA-Public Use
  Company Number: AU-ROCHE-1365570

PATIENT
  Age: 46 Year
  Sex: Male

DRUGS (6)
  1. PEG-INTERFERON ALFA 2A [Suspect]
     Indication: HEPATITIS C
     Route: 065
     Dates: start: 200512
  2. RIBAVIRIN [Suspect]
     Indication: HEPATITIS C
     Route: 065
     Dates: start: 200512
  3. GABAPENTIN [Concomitant]
     Dosage: TDS
     Route: 065
  4. AMITRIPTYLINE [Concomitant]
     Dosage: NOCTE
     Route: 065
  5. ASPIRIN [Concomitant]
     Route: 065
  6. DOXYCYCLINE [Concomitant]
     Route: 065

REACTIONS (5)
  - Nausea [Unknown]
  - Vomiting [Unknown]
  - Extremity necrosis [Unknown]
  - Scrotal ulcer [Unknown]
  - Skin ulcer [Unknown]
